FAERS Safety Report 18205839 (Version 1)
Quarter: 2020Q3

REPORT INFORMATION
  Report Type: Report from Study
  Country: FR (occurrence: FR)
  Receive Date: 20200828
  Receipt Date: 20200828
  Transmission Date: 20201103
  Serious: Yes (Death, Other)
  Sender: FDA-Public Use
  Company Number: FR-AUROBINDO-AUR-APL-2015-06475

PATIENT
  Age: 4 Month

DRUGS (2)
  1. CARBOPLATIN. [Suspect]
     Active Substance: CARBOPLATIN
     Indication: CHEMOTHERAPY
     Dosage: UNK
     Route: 065
  2. VINCRISTINE [Suspect]
     Active Substance: VINCRISTINE
     Indication: CHEMOTHERAPY
     Dosage: UNK
     Route: 065

REACTIONS (8)
  - Cardiac failure [Fatal]
  - Pancytopenia [Fatal]
  - Toxicity to various agents [Fatal]
  - Product use issue [Unknown]
  - Sepsis [Fatal]
  - Venoocclusive disease [Fatal]
  - Hypertension [Fatal]
  - Drug ineffective [Unknown]
